FAERS Safety Report 4414639-0 (Version None)
Quarter: 2004Q3

REPORT INFORMATION
  Report Type: 
  Country: None (occurrence: None)
  Receive Date: 20040729
  Receipt Date: 20040715
  Transmission Date: 20050211
  Serious: No
  Sender: FDA-Public Use
  Company Number: CERZ-10617

PATIENT
  Age: 4 Year
  Sex: Female
  Weight: 13 kg

DRUGS (1)
  1. CEREZYME [Suspect]
     Indication: GAUCHER'S DISEASE
     Dosage: 76.9 U/KG Q2WKS IV
     Route: 042
     Dates: start: 19991215

REACTIONS (4)
  - BRONCHITIS ACUTE [None]
  - DEAFNESS NEUROSENSORY [None]
  - NASOPHARYNGITIS [None]
  - STREPTOCOCCAL INFECTION [None]
